FAERS Safety Report 14249618 (Version 1)
Quarter: 2017Q4

REPORT INFORMATION
  Report Type: Spontaneous
  Country: IT (occurrence: IT)
  Receive Date: 20171205
  Receipt Date: 20171205
  Transmission Date: 20180321
  Serious: Yes (Hospitalization, Other)
  Sender: FDA-Public Use
  Company Number: IT-ROCHE-2031353

PATIENT
  Age: 25 Year
  Sex: Male

DRUGS (3)
  1. DIAZEPAM. [Suspect]
     Active Substance: DIAZEPAM
     Indication: NEUROSIS
     Dosage: 40-50 TABLETS OF 5 MG DIAZEPAM (200-250 MG) EVERY DAY
     Route: 048
  2. MAPROTILINE [Suspect]
     Active Substance: MAPROTILINE
     Indication: DEPRESSION
     Route: 065
  3. DIAZEPAM. [Suspect]
     Active Substance: DIAZEPAM
     Indication: DEPRESSION

REACTIONS (3)
  - Status epilepticus [Recovered/Resolved]
  - Withdrawal syndrome [Recovered/Resolved]
  - Intentional overdose [Unknown]
